FAERS Safety Report 7779041-2 (Version None)
Quarter: 2011Q3

REPORT INFORMATION
  Report Type: 
  Country: None (occurrence: None)
  Receive Date: 20110926
  Receipt Date: 20110721
  Transmission Date: 20111222
  Serious: Yes (Other)
  Sender: FDA-Public Use
  Company Number: US-BAYER-2011-015275

PATIENT
  Sex: Male
  Weight: 74 kg

DRUGS (12)
  1. MAGNEVIST [Suspect]
  2. OMNISCAN [Suspect]
     Indication: NUCLEAR MAGNETIC RESONANCE IMAGING
     Dosage: UNK
     Dates: start: 20060618, end: 20060618
  3. GADOLINIUM IN UNSPECIFIED DRUG [Suspect]
     Indication: NUCLEAR MAGNETIC RESONANCE IMAGING
  4. PLAVIX [Concomitant]
  5. OMNISCAN [Suspect]
     Indication: ANGIOGRAM
     Dosage: UNK
     Dates: start: 20060617, end: 20060617
  6. GADOLINIUM IN UNSPECIFIED DRUG [Suspect]
     Indication: COMPUTERISED TOMOGRAM HEAD
     Dosage: UNK
     Dates: start: 20060613, end: 20060613
  7. OMNISCAN [Suspect]
     Indication: NUCLEAR MAGNETIC RESONANCE IMAGING BRAIN
     Dosage: UNK
     Dates: start: 20060616, end: 20060616
  8. GADOLINIUM IN UNSPECIFIED DRUG [Suspect]
     Indication: NUCLEAR MAGNETIC RESONANCE IMAGING BRAIN
     Dosage: UNK
     Dates: start: 20081001, end: 20081001
  9. GADOLINIUM IN UNSPECIFIED DRUG [Suspect]
     Indication: ANGIOGRAM
  10. CLARITIN [Concomitant]
  11. VITAMIN TAB [Concomitant]
  12. IBUPROFEN [Concomitant]

REACTIONS (16)
  - NEPHROGENIC SYSTEMIC FIBROSIS [None]
  - SKIN FIBROSIS [None]
  - OEDEMA [None]
  - ANXIETY [None]
  - SCAR [None]
  - JOINT STIFFNESS [None]
  - VEIN DISCOLOURATION [None]
  - EMOTIONAL DISTRESS [None]
  - PAIN [None]
  - RASH [None]
  - ARTHRALGIA [None]
  - MOBILITY DECREASED [None]
  - SEXUAL DYSFUNCTION [None]
  - SKIN HYPERTROPHY [None]
  - GENITAL RASH [None]
  - SKIN TIGHTNESS [None]
